FAERS Safety Report 9441747 (Version 10)
Quarter: 2016Q1

REPORT INFORMATION
  Report Type: Report from Study
  Country: JP (occurrence: JP)
  Receive Date: 20130806
  Receipt Date: 20160122
  Transmission Date: 20160526
  Serious: Yes (Hospitalization)
  Sender: FDA-Public Use
  Company Number: JP-009507513-1308JPN001278

PATIENT
  Age: 61 Year
  Sex: Female

DRUGS (25)
  1. ZOLINZA [Suspect]
     Active Substance: VORINOSTAT
     Dosage: 300 MG, QD
     Route: 048
     Dates: start: 20120926, end: 20121009
  2. ZOLINZA [Suspect]
     Active Substance: VORINOSTAT
     Dosage: 300 MG, 5 DAYS DOSAGE, 2 DAYS INTERRUPTION
     Route: 048
     Dates: start: 20130318, end: 20130519
  3. CALONAL [Concomitant]
     Active Substance: ACETAMINOPHEN
     Indication: PRURITUS
  4. ZOLINZA [Suspect]
     Active Substance: VORINOSTAT
     Indication: MYCOSIS FUNGOIDES
     Dosage: 400 MG, QD
     Route: 048
     Dates: start: 20120909, end: 20120920
  5. ADRIACIN [Suspect]
     Active Substance: DOXORUBICIN HYDROCHLORIDE
     Indication: MYCOSIS FUNGOIDES
     Dosage: 70 MG, ONCE A DAY
     Route: 051
     Dates: start: 20120820
  6. NEUFAN [Concomitant]
     Active Substance: ALLOPURINOL
     Indication: MYCOSIS FUNGOIDES
     Dosage: 100 MG, TWICE A DAY
     Route: 048
     Dates: start: 20120819, end: 20120909
  7. SOLDEM 1 [Concomitant]
     Active Substance: DEXTROSE\SODIUM CHLORIDE\SODIUM LACTATE
     Indication: MYCOSIS FUNGOIDES
     Dosage: 1000 ML, ONCE A DAY
     Route: 051
     Dates: start: 20120914, end: 20120923
  8. SOLDEM 1 [Concomitant]
     Active Substance: DEXTROSE\SODIUM CHLORIDE\SODIUM LACTATE
     Indication: PROPHYLAXIS
  9. ZOLINZA [Suspect]
     Active Substance: VORINOSTAT
     Dosage: 300 MG, 5 DAYS DOSAGE, 2 DAYS INTERRUPTION
     Route: 048
     Dates: start: 20121126, end: 20130120
  10. ZOLINZA [Suspect]
     Active Substance: VORINOSTAT
     Dosage: 300 MG, CYCLICAL, 6 DAYS DOSAGE, 1 DAY INTERRUPTION
     Route: 048
     Dates: start: 20130121, end: 20130317
  11. ENDOXAN [Suspect]
     Active Substance: CYCLOPHOSPHAMIDE
     Indication: MYCOSIS FUNGOIDES
     Dosage: 1056 MG, ONCE A DAY
     Route: 051
     Dates: start: 20120820
  12. ONCOVIN [Suspect]
     Active Substance: VINCRISTINE SULFATE
     Indication: MYCOSIS FUNGOIDES
     Dosage: 1.97 MG, ONCE A DAY
     Route: 051
     Dates: start: 20120820
  13. NEUFAN [Concomitant]
     Active Substance: ALLOPURINOL
     Indication: PROPHYLAXIS
     Dosage: 100 MG,  TWICE A DAY
     Route: 048
  14. ALESION [Concomitant]
     Active Substance: EPINASTINE HYDROCHLORIDE
     Indication: MYCOSIS FUNGOIDES
     Dosage: 20 MG, ONCE A DAY
     Route: 048
  15. CALONAL [Concomitant]
     Active Substance: ACETAMINOPHEN
     Indication: SCAR
     Dosage: 200 MG, THREE TIMES A DAY
     Route: 048
     Dates: start: 20121104, end: 20130116
  16. ZOLINZA [Suspect]
     Active Substance: VORINOSTAT
     Dosage: 300 MG, 6 DAYS, 1 DAY INTERRUPTION
     Route: 048
     Dates: start: 20130520, end: 20130602
  17. ZOLINZA [Suspect]
     Active Substance: VORINOSTAT
     Dosage: 300 MG, (5 DAYS DOSAGE, 1 DAY INTERRUPTION)
     Route: 048
     Dates: start: 20130603
  18. PREDONINE [Suspect]
     Active Substance: PREDNISOLONE\PREDNISOLONE ACETATE\PREDNISOLONE SODIUM SUCCINATE
     Indication: MYCOSIS FUNGOIDES
     Dosage: 60 MG, TWICE A DAY
     Route: 048
     Dates: start: 20120821, end: 20120824
  19. NEUFAN [Concomitant]
     Active Substance: ALLOPURINOL
     Dosage: 100 MG,  TWICE A DAY
     Route: 048
     Dates: end: 20130715
  20. ALLELOCK [Concomitant]
     Active Substance: OLOPATADINE HYDROCHLORIDE
     Indication: MYCOSIS FUNGOIDES
     Dosage: 5 MG, TWICE A DAY
     Route: 048
     Dates: start: 20120713
  21. ALLELOCK [Concomitant]
     Active Substance: OLOPATADINE HYDROCHLORIDE
     Indication: PRURITUS
  22. ZOLINZA [Suspect]
     Active Substance: VORINOSTAT
     Dosage: 300 MG, 5 CONSECUTIVE DAYS TREATMENT AND 2 DAYS INTERRUPTION
     Route: 048
     Dates: start: 20121015, end: 20121107
  23. PREDONINE [Suspect]
     Active Substance: PREDNISOLONE\PREDNISOLONE ACETATE\PREDNISOLONE SODIUM SUCCINATE
     Indication: MYCOSIS FUNGOIDES
     Dosage: 60 MG, ONCE A DAY
     Route: 051
     Dates: start: 20120820
  24. DIOVAN [Concomitant]
     Active Substance: VALSARTAN
     Indication: MYCOSIS FUNGOIDES
     Dosage: 40 MG, ONCE A DAY
     Route: 048
     Dates: start: 20121009
  25. ALESION [Concomitant]
     Active Substance: EPINASTINE HYDROCHLORIDE
     Indication: PRURITUS

REACTIONS (7)
  - Renal impairment [Not Recovered/Not Resolved]
  - Dysgeusia [Recovered/Resolved]
  - Drug effect incomplete [Unknown]
  - Thrombophlebitis [Recovered/Resolved]
  - Renal impairment [Recovered/Resolved]
  - Platelet count decreased [Recovered/Resolved]
  - Platelet count decreased [Not Recovered/Not Resolved]

NARRATIVE: CASE EVENT DATE: 20120918
